FAERS Safety Report 22323677 (Version 1)
Quarter: 2023Q2

REPORT INFORMATION
  Report Type: Spontaneous
  Country: US (occurrence: None)
  Receive Date: 20230512
  Receipt Date: 20230512
  Transmission Date: 20230722
  Serious: Yes (unspecified)
  Sender: FDA-Public Use
  Company Number: None

PATIENT
  Age: 58 Year
  Sex: Female
  Weight: 63 kg

DRUGS (3)
  1. FOSAMAX [Suspect]
     Active Substance: ALENDRONATE SODIUM
     Indication: Osteoporosis
     Dates: start: 20230422, end: 20230507
  2. VITAMIN B [Concomitant]
     Active Substance: VITAMIN B
  3. VITAMIN D [Concomitant]
     Active Substance: VITAMIN D NOS

REACTIONS (15)
  - Dizziness [None]
  - Dyspepsia [None]
  - Abdominal discomfort [None]
  - Abdominal pain upper [None]
  - Nausea [None]
  - Diarrhoea [None]
  - Constipation [None]
  - Myalgia [None]
  - Arthralgia [None]
  - Abdominal distension [None]
  - Flatulence [None]
  - Headache [None]
  - Taste disorder [None]
  - Swollen tongue [None]
  - Feeling abnormal [None]

NARRATIVE: CASE EVENT DATE: 20230508
